FAERS Safety Report 5105221-0 (Version None)
Quarter: 2006Q3

REPORT INFORMATION
  Report Type: 
  Country: None (occurrence: None)
  Receive Date: 20060911
  Receipt Date: 20060829
  Transmission Date: 20061208
  Serious: Yes (Hospitalization)
  Sender: FDA-Public Use
  Company Number: US-2006-025027

PATIENT
  Age: 47 Year
  Sex: Female

DRUGS (1)
  1. BETASERON (INTERFERON  BETA - 1B) INJECTION , 250 MICROGRAM [Suspect]
     Indication: MULTIPLE SCLEROSIS
     Dosage: SUBCUTANEOUS
     Route: 058
     Dates: start: 20060627, end: 20060720

REACTIONS (6)
  - CELLULITIS [None]
  - FEELING ABNORMAL [None]
  - MEMORY IMPAIRMENT [None]
  - NAUSEA [None]
  - OEDEMA PERIPHERAL [None]
  - PYREXIA [None]
